FAERS Safety Report 22615235 (Version 2)
Quarter: 2023Q2

REPORT INFORMATION
  Report Type: Spontaneous
  Country: FR (occurrence: FR)
  Receive Date: 20230619
  Receipt Date: 20230621
  Transmission Date: 20230721
  Serious: Yes (Hospitalization)
  Sender: FDA-Public Use
  Company Number: None

PATIENT
  Age: 68 Year
  Sex: Female
  Weight: 54 kg

DRUGS (5)
  1. XOLAIR [Suspect]
     Active Substance: OMALIZUMAB
     Indication: Pemphigoid
     Dosage: 300 MG, QMO (300MG/ MOIS) (1FP)
     Route: 048
     Dates: start: 202110
  2. RITUXIMAB [Suspect]
     Active Substance: RITUXIMAB
     Indication: Pemphigoid
     Dosage: 1000 MG (1FP)
     Route: 042
     Dates: start: 20211026, end: 20230207
  3. DAPSONE\FERROUS OXALATE [Suspect]
     Active Substance: DAPSONE\FERROUS OXALATE
     Indication: Pemphigoid
     Dosage: 125 MG, QD (125 MG/ JOUR) (1 FP)
     Route: 048
     Dates: start: 202111, end: 20230515
  4. FOLIC ACID [Concomitant]
     Active Substance: FOLIC ACID
     Indication: Product used for unknown indication
     Dosage: 5 MG, QW (5 MG 2 FOIS PAR SEMAINE) (1FP)
  5. FOLIC ACID [Concomitant]
     Active Substance: FOLIC ACID
     Dosage: 5 MG, BIW (5 MG 2 FOIS PAR SEMAINE) (1FP)

REACTIONS (1)
  - Agranulocytosis [Recovered/Resolved]

NARRATIVE: CASE EVENT DATE: 20230516
